FAERS Safety Report 19091946 (Version 1)
Quarter: 2021Q2

REPORT INFORMATION
  Report Type: Spontaneous
  Country: PT (occurrence: PT)
  Receive Date: 20210405
  Receipt Date: 20210405
  Transmission Date: 20210717
  Serious: Yes (Hospitalization, Other)
  Sender: FDA-Public Use
  Company Number: PT-ALVOGEN-2021-ALVOGEN-116833

PATIENT
  Age: 47 Year
  Sex: Male

DRUGS (5)
  1. THIAMINE. [Concomitant]
     Active Substance: THIAMINE
     Indication: DETOXIFICATION
     Dosage: INTRAMUSCULAR FOR 4 DAYS AND THEN ORAL
  2. FOLIC ACID. [Concomitant]
     Active Substance: FOLIC ACID
     Indication: DETOXIFICATION
  3. DISULFIRAM. [Suspect]
     Active Substance: DISULFIRAM
     Indication: ALCOHOL WITHDRAWAL SYNDROME
  4. LACTULOSE. [Concomitant]
     Active Substance: LACTULOSE
     Indication: DETOXIFICATION
  5. OXAZEPAM. [Concomitant]
     Active Substance: OXAZEPAM
     Indication: DETOXIFICATION

REACTIONS (1)
  - Epilepsy [Recovered/Resolved]
